FAERS Safety Report 8716253 (Version 3)
Quarter: 2013Q4

REPORT INFORMATION
  Report Type: Report from Study
  Country: US (occurrence: US)
  Receive Date: 20120810
  Receipt Date: 20131031
  Transmission Date: 20140711
  Serious: Yes (Death, Life-Threatening, Hospitalization)
  Sender: FDA-Public Use
  Company Number: US-009507513-1208USA000297

PATIENT
  Age: 60 Year
  Sex: Female
  Weight: 101 kg

DRUGS (7)
  1. VORINOSTAT [Suspect]
     Indication: ACUTE MYELOID LEUKAEMIA
     Dosage: 400 MG, QD
     Route: 048
     Dates: start: 20120630, end: 20120708
  2. VORINOSTAT [Suspect]
     Dosage: 400 MG, QD
     Route: 048
     Dates: start: 20120717
  3. AZACITIDINE [Suspect]
     Indication: ACUTE MYELOID LEUKAEMIA
     Dosage: 75 MG/M2, QD
     Route: 058
     Dates: start: 20120630, end: 20120706
  4. AZACITIDINE [Suspect]
     Dosage: 75 MG/M2, QD
     Route: 058
     Dates: start: 20120717
  5. GEMTUZUMAB OZOGAMICIN [Suspect]
     Indication: ACUTE MYELOID LEUKAEMIA
     Dosage: 3 MG/M2, ONCE
     Route: 042
     Dates: start: 20120703, end: 20120703
  6. GEMTUZUMAB OZOGAMICIN [Suspect]
     Dosage: 3 MG/M2, ONCE
     Route: 042
     Dates: start: 20120707, end: 20120707
  7. GEMTUZUMAB OZOGAMICIN [Suspect]
     Dosage: 3 MG/M2, ONCE
     Route: 042
     Dates: start: 20120720, end: 20120720

REACTIONS (6)
  - Sinus tachycardia [Unknown]
  - Nausea [Unknown]
  - Hypoxia [Unknown]
  - Acidosis [Unknown]
  - Sepsis [Fatal]
  - Abdominal pain [Unknown]
